FAERS Safety Report 23061195 (Version 2)
Quarter: 2023Q4

REPORT INFORMATION
  Report Type: Spontaneous
  Country: JP (occurrence: JP)
  Receive Date: 20231013
  Receipt Date: 20231020
  Transmission Date: 20240110
  Serious: No
  Sender: FDA-Public Use
  Company Number: JP-GSKCHJ-JPCH2023JPN048306AA

PATIENT

DRUGS (3)
  1. NICOTINELL [Suspect]
     Active Substance: NICOTINE
     Indication: Smoking cessation therapy
     Dosage: UNK
     Route: 050
     Dates: start: 20230720, end: 2023
  2. NICOTINELL [Suspect]
     Active Substance: NICOTINE
     Dosage: UNK
     Route: 050
     Dates: start: 2023, end: 2023
  3. NICOTINELL [Suspect]
     Active Substance: NICOTINE
     Dosage: UNK
     Route: 050
     Dates: start: 2023

REACTIONS (2)
  - Treatment noncompliance [Unknown]
  - Product use issue [Unknown]

NARRATIVE: CASE EVENT DATE: 20230101
